FAERS Safety Report 12375575 (Version 1)
Quarter: 2016Q2

REPORT INFORMATION
  Report Type: Spontaneous
  Country: US (occurrence: None)
  Receive Date: 20160516
  Receipt Date: 20160516
  Transmission Date: 20160815
  Serious: Yes (Hospitalization, Other)
  Sender: FDA-Public Use
  Company Number: None

PATIENT
  Age: 71 Year
  Sex: Male
  Weight: 74.84 kg

DRUGS (6)
  1. ANTIDEPRESSANT [Concomitant]
     Active Substance: UNSPECIFIED INGREDIENT
  2. AMANTADINE [Concomitant]
     Active Substance: AMANTADINE
  3. THYROID MEDS [Concomitant]
  4. RYTARY [Suspect]
     Active Substance: CARBIDOPA\LEVODOPA
     Indication: PARKINSON^S DISEASE
     Route: 048
     Dates: start: 20160425, end: 20160502
  5. DULCOSATE [Concomitant]
  6. MEMORY MEDS [Concomitant]

REACTIONS (5)
  - Paranoia [None]
  - Hallucination, visual [None]
  - Fear [None]
  - Aggression [None]
  - Therapy change [None]

NARRATIVE: CASE EVENT DATE: 20160501
